FAERS Safety Report 12520099 (Version 1)
Quarter: 2016Q2

REPORT INFORMATION
  Report Type: Spontaneous
  Country: US (occurrence: US)
  Receive Date: 20160630
  Receipt Date: 20160630
  Transmission Date: 20160815
  Serious: No
  Sender: FDA-Public Use
  Company Number: US-PFIZER INC-2016294742

PATIENT
  Sex: Male
  Weight: 79 kg

DRUGS (2)
  1. NEURONTIN [Suspect]
     Active Substance: GABAPENTIN
     Indication: HEADACHE
     Dosage: 600 MG, 4X/DAY, ^TWO 300 MG CAPSULES^
  2. NEURONTIN [Suspect]
     Active Substance: GABAPENTIN
     Indication: PARAESTHESIA
     Dosage: 600 MG, 4X/DAY, ^ONE 600 MG TABLET^

REACTIONS (6)
  - Tremor [Unknown]
  - Feeling abnormal [Unknown]
  - Muscle contractions involuntary [Unknown]
  - Sleep disorder [Unknown]
  - Headache [Unknown]
  - Drug withdrawal syndrome [Unknown]
